FAERS Safety Report 6862962-2 (Version None)
Quarter: 2010Q3

REPORT INFORMATION
  Report Type: 
  Country: None (occurrence: None)
  Receive Date: 20100719
  Receipt Date: 20100702
  Transmission Date: 20110219
  Serious: Yes (Life-Threatening, Hospitalization, Other)
  Sender: FDA-Public Use
  Company Number: A-CH2009-24971

PATIENT
  Age: 57 Year
  Sex: Male
  Weight: 76 kg

DRUGS (4)
  1. TRACLEER [Suspect]
     Indication: SKIN ULCER
     Dosage: 125 MG, BID, ORAL; 62.5 MG, BID, ORAL; 62.5 MG, BID, ORAL
     Route: 048
     Dates: start: 20091001, end: 20091031
  2. TRACLEER [Suspect]
     Indication: SKIN ULCER
     Dosage: 125 MG, BID, ORAL; 62.5 MG, BID, ORAL; 62.5 MG, BID, ORAL
     Route: 048
     Dates: start: 20090316
  3. PYOSTACINE (PRISTINAMYCIN) [Suspect]
     Indication: ERYSIPELAS
     Dosage: ORAL
     Route: 048
     Dates: start: 20090401, end: 20090411
  4. TORENTAL (PENTOXIFYLLINE) [Suspect]
     Indication: SKIN ULCER
     Dosage: ORAL
     Route: 048
     Dates: start: 20090226

REACTIONS (11)
  - ALCOHOLISM [None]
  - ASTHENIA [None]
  - BLISTER [None]
  - CHOLESTASIS [None]
  - CONDITION AGGRAVATED [None]
  - CUTANEOUS LUPUS ERYTHEMATOSUS [None]
  - CYTOLYTIC HEPATITIS [None]
  - ERYSIPELAS [None]
  - HAEMATOLOGY TEST ABNORMAL [None]
  - LEUKOCYTOCLASTIC VASCULITIS [None]
  - THROMBOTIC MICROANGIOPATHY [None]
